FAERS Safety Report 7578163-9 (Version None)
Quarter: 2011Q2

REPORT INFORMATION
  Report Type: 
  Country: None (occurrence: None)
  Receive Date: 20110628
  Receipt Date: 20110621
  Transmission Date: 20111010
  Serious: Yes (Other)
  Sender: FDA-Public Use
  Company Number: A0932216A

PATIENT
  Age: 48 Year
  Sex: Female

DRUGS (2)
  1. VENTOLIN HFA [Concomitant]
  2. ADVAIR DISKUS 100/50 [Suspect]
     Indication: ASTHMA
     Dosage: 1PUFF AS REQUIRED
     Route: 055

REACTIONS (2)
  - CHEST DISCOMFORT [None]
  - ANGINA PECTORIS [None]
